FAERS Safety Report 8574057-0 (Version None)
Quarter: 2012Q2

REPORT INFORMATION
  Report Type: 
  Country: None (occurrence: None)
  Receive Date: 20120423
  Receipt Date: 20100517
  Transmission Date: 20120825
  Serious: Yes (Other)
  Sender: FDA-Public Use
  Company Number: PHHY2010US30022

PATIENT
  Sex: Female
  Weight: 65.3 kg

DRUGS (1)
  1. EXJADE [Suspect]
     Dosage: 100O MG DAILY, ORAL
     Route: 048
     Dates: start: 20100317

REACTIONS (1)
  - SICKLE CELL ANAEMIA WITH CRISIS [None]
